FAERS Safety Report 4643066-6 (Version None)
Quarter: 2005Q2

REPORT INFORMATION
  Report Type: 
  Country: None (occurrence: None)
  Receive Date: 20050421
  Receipt Date: 20050314
  Transmission Date: 20051028
  Serious: Yes (Death, Hospitalization)
  Sender: FDA-Public Use
  Company Number: 034-0981-M0200094

PATIENT
  Age: 77 Year
  Sex: Male
  Weight: 78 kg

DRUGS (15)
  1. ATORVASTATIN CALCIUM [Suspect]
     Indication: CORONARY ARTERY DISEASE
     Dosage: 80 MG (80 MG, 1 IN 1 D), ORAL
     Route: 048
     Dates: start: 20000425, end: 20000908
  2. ISOSORBIDE MONONITRATE [Concomitant]
  3. CARVEDILOL [Concomitant]
  4. ENALAPRIL MALEATE [Concomitant]
  5. ALLOPURINOL [Concomitant]
  6. WARFARIN SODIUM [Concomitant]
  7. FUROSEMIDE [Concomitant]
  8. NITROGLYCERIN [Concomitant]
  9. SPIRONOLACTONE [Concomitant]
  10. ACETYLCYSTEINE [Concomitant]
  11. ATORVASTATIN CALCIUM [Concomitant]
  12. ZOPICLONE (ZOPICLONE) [Concomitant]
  13. ALENDRONATE SODIUM [Suspect]
  14. DICLOFENAC SODIUM [Concomitant]
  15. CODEINE PHOSPHATE AND ACETAMINOPHEN [Concomitant]

REACTIONS (6)
  - BREAST CANCER MALE [None]
  - CARDIAC FAILURE [None]
  - OEDEMA PERIPHERAL [None]
  - OSTEOPOROSIS [None]
  - SPINAL FRACTURE [None]
  - SUDDEN DEATH [None]
